FAERS Safety Report 19212503 (Version 1)
Quarter: 2021Q2

REPORT INFORMATION
  Report Type: Spontaneous
  Country: US (occurrence: US)
  Receive Date: 20210504
  Receipt Date: 20210504
  Transmission Date: 20210717
  Serious: No
  Sender: FDA-Public Use
  Company Number: None

PATIENT
  Age: 66 Year
  Sex: Female
  Weight: 94.5 kg

DRUGS (6)
  1. NYSTATIN ORAL SUSPENSION [Concomitant]
     Active Substance: NYSTATIN
  2. VITAMIN D3 [Concomitant]
     Active Substance: CHOLECALCIFEROL
  3. CITRUCEL [Concomitant]
     Active Substance: METHYLCELLULOSE (4000 MPA.S)
  4. CHOLESTYRAMINE FOR ORAL SUSPENSION USP, LIGHT POWDER [Suspect]
     Active Substance: CHOLESTYRAMINE
     Indication: GALLBLADDER OPERATION
     Dosage: ?          QUANTITY:1 SCOOP;?
     Route: 048
     Dates: start: 20210208, end: 20210421
  5. VITAMIN D2 [Concomitant]
     Active Substance: ERGOCALCIFEROL
  6. PREVALITE [Concomitant]
     Active Substance: CHOLESTYRAMINE

REACTIONS (3)
  - Oral candidiasis [None]
  - Manufacturing issue [None]
  - Product quality issue [None]

NARRATIVE: CASE EVENT DATE: 20210208
